FAERS Safety Report 9255666 (Version 2)
Quarter: 2013Q2

REPORT INFORMATION
  Report Type: Spontaneous
  Country: US (occurrence: US)
  Receive Date: 20130425
  Receipt Date: 20130604
  Transmission Date: 20140414
  Serious: Yes (Life-Threatening, Hospitalization, Other)
  Sender: FDA-Public Use
  Company Number: US-PFIZER INC-2013125221

PATIENT
  Age: 79 Year
  Sex: Male

DRUGS (11)
  1. ATORVASTATIN [Suspect]
     Dosage: 80 MG, 1X/DAY
     Dates: end: 20130416
  2. SIMVASTATIN [Suspect]
     Dosage: UNK
  3. ASPIRIN [Concomitant]
     Dosage: 81 MG, 1X/DAY
  4. DIGOXIN [Concomitant]
     Dosage: 0.125 MG, 1X/DAY
     Route: 048
  5. METOPROLOL [Concomitant]
     Dosage: 25 MG, 2X/DAY
     Route: 048
  6. OMEPRAZOLE [Concomitant]
     Dosage: 20 MG, 1X/DAY
     Route: 048
  7. PRADAXA [Concomitant]
     Indication: ATRIAL FIBRILLATION
     Dosage: 150 MG, 1 BY MOUTH TWICE A DAY
     Route: 048
  8. ZETIA [Concomitant]
     Dosage: 10 MG, 1X/DAY
     Route: 048
  9. BENICAR [Concomitant]
     Dosage: 40 MG, 1 BY MOUTH DAILY
     Route: 048
  10. AGGRENOX [Concomitant]
     Dosage: 200 MG, 2X/DAY
  11. HYDROCHLOROTHIAZIDE [Concomitant]
     Dosage: 12.5 MG, 1X/DAY
     Route: 048

REACTIONS (3)
  - Diarrhoea [Recovered/Resolved with Sequelae]
  - Dehydration [Recovered/Resolved with Sequelae]
  - Renal failure acute [Recovered/Resolved]
